FAERS Safety Report 9596871 (Version 1)
Quarter: 2013Q4

REPORT INFORMATION
  Report Type: Spontaneous
  Country: US (occurrence: US)
  Receive Date: 20131004
  Receipt Date: 20131004
  Transmission Date: 20140711
  Serious: Yes (Other)
  Sender: FDA-Public Use
  Company Number: US-ACTAVISPR-2013-17241

PATIENT
  Age: 42 Year
  Sex: Female

DRUGS (1)
  1. CRINONE (WATSON LABORATORIES) [Suspect]
     Indication: PRODUCT USED FOR UNKNOWN INDICATION
     Dosage: UNK, BID
     Route: 065
     Dates: start: 20130808

REACTIONS (4)
  - Abortion spontaneous [Unknown]
  - Vulvovaginal discomfort [Recovered/Resolved]
  - Pruritus [Unknown]
  - Application site pain [Unknown]
